FAERS Safety Report 6690992-2 (Version None)
Quarter: 2010Q2

REPORT INFORMATION
  Report Type: 
  Country: None (occurrence: None)
  Receive Date: 20100421
  Receipt Date: 20100415
  Transmission Date: 20101027
  Serious: Yes (Other)
  Sender: FDA-Public Use
  Company Number: JP-ABBOTT-09P-087-0615676-00

PATIENT
  Age: 60 Year
  Sex: Male

DRUGS (2)
  1. FENOFIBRATE [Suspect]
     Indication: HYPERLIPIDAEMIA
     Route: 048
     Dates: start: 20051126, end: 20091203
  2. SENNOSIDE [Concomitant]
     Indication: DRUG USE FOR UNKNOWN INDICATION
     Dates: start: 20051126

REACTIONS (1)
  - HYPOTHYROIDISM [None]
